FAERS Safety Report 8518658-4 (Version None)
Quarter: 2012Q3

REPORT INFORMATION
  Report Type: 
  Country: None (occurrence: None)
  Receive Date: 20120718
  Receipt Date: 20120712
  Transmission Date: 20120928
  Serious: Yes (Other)
  Sender: FDA-Public Use
  Company Number: US-BAYER-2012-030736

PATIENT
  Age: 44 Year
  Sex: Female
  Weight: 130 kg

DRUGS (16)
  1. NEPHROVITE [VIT C,VIT H,B5,B12,B9,B3,B6,B2,B1 HCL] [Concomitant]
  2. OPTIMARK [Suspect]
  3. OMNISCAN [Suspect]
     Indication: NUCLEAR MAGNETIC RESONANCE IMAGING
     Route: 042
  4. OMNISCAN [Suspect]
     Indication: ANGIOGRAM
  5. COUMADIN [Concomitant]
  6. MAGNEVIST [Suspect]
     Indication: NUCLEAR MAGNETIC RESONANCE IMAGING
     Dosage: UNK
     Route: 042
  7. ACCUPRIL [Concomitant]
     Dosage: 40 MG, BID
     Route: 048
  8. ATENOLOL [Concomitant]
     Dosage: 25 MG, BID
     Route: 048
  9. OPTIMARK [Suspect]
     Indication: NUCLEAR MAGNETIC RESONANCE IMAGING
     Dosage: UNK
     Route: 042
     Dates: start: 20040206
  10. OPTIMARK [Suspect]
     Indication: ANGIOGRAM
     Dosage: UNK
     Route: 042
     Dates: start: 20050531
  11. OPTIMARK [Suspect]
     Dosage: UNK
     Dates: start: 20050831
  12. EPOGEN [Concomitant]
  13. RENAGEL [Concomitant]
     Dosage: 3 TABLETS AFTER MEALS
     Route: 048
  14. CALCITRIOL [Concomitant]
     Dosage: UNK UNK, QD
  15. DIOVAN [Concomitant]
     Dosage: 160 MG, QD
     Route: 048
  16. NORVASC [Concomitant]
     Dosage: 10 MG, QD
     Route: 048

REACTIONS (18)
  - PAIN [None]
  - EMOTIONAL DISTRESS [None]
  - NEPHROGENIC SYSTEMIC FIBROSIS [None]
  - PAIN OF SKIN [None]
  - SKIN TIGHTNESS [None]
  - MUSCULOSKELETAL STIFFNESS [None]
  - MOBILITY DECREASED [None]
  - SCLERODACTYLIA [None]
  - INJURY [None]
  - ARTHRALGIA [None]
  - GAIT DISTURBANCE [None]
  - SKIN DISCOLOURATION [None]
  - SYSTEMIC SCLEROSIS [None]
  - SCLERODERMA [None]
  - FEAR [None]
  - OEDEMA [None]
  - HAND DEFORMITY [None]
  - ANXIETY [None]
